FAERS Safety Report 25498669 (Version 1)
Quarter: 2025Q3

REPORT INFORMATION
  Report Type: Spontaneous
  Country: GB (occurrence: GB)
  Receive Date: 20250701
  Receipt Date: 20250701
  Transmission Date: 20251021
  Serious: Yes (Other)
  Sender: ACCORD
  Company Number: None

PATIENT
  Age: 71 Year
  Sex: Female
  Weight: 57 kg

DRUGS (5)
  1. CLOPIDOGREL [Suspect]
     Active Substance: CLOPIDOGREL BISULFATE
     Indication: Transient ischaemic attack
     Dates: start: 20241208
  2. AMLODIPINE [Concomitant]
     Active Substance: AMLODIPINE BESYLATE
     Indication: Blood pressure management
     Dates: start: 20241114
  3. AMITRIPTYLINE [Concomitant]
     Active Substance: AMITRIPTYLINE
     Indication: Migraine
  4. BISOPROLOL [Concomitant]
     Active Substance: BISOPROLOL
     Indication: Palpitations
     Dates: start: 20250110
  5. LANSOPRAZOLE [Concomitant]
     Active Substance: LANSOPRAZOLE
     Indication: Adverse drug reaction

REACTIONS (1)
  - Gastritis [Not Recovered/Not Resolved]

NARRATIVE: CASE EVENT DATE: 20250612
